FAERS Safety Report 4818114-0 (Version None)
Quarter: 2005Q4

REPORT INFORMATION
  Report Type: 
  Country: None (occurrence: None)
  Receive Date: 20051102
  Receipt Date: 20050406
  Transmission Date: 20060501
  Serious: Yes (Hospitalization, Disabling)
  Sender: FDA-Public Use
  Company Number: US-MERCK-0504USA01054

PATIENT
  Age: 55 Year
  Sex: Female
  Weight: 77 kg

DRUGS (2)
  1. VIOXX [Suspect]
     Indication: ARTHRITIS
     Route: 048
     Dates: start: 19990101
  2. VIOXX [Suspect]
     Indication: FIBROMYALGIA
     Route: 048
     Dates: start: 19990101

REACTIONS (3)
  - ARTERIAL OCCLUSIVE DISEASE [None]
  - DEPRESSION [None]
  - THYROID DISORDER [None]
